FAERS Safety Report 6981292-1 (Version None)
Quarter: 2010Q3

REPORT INFORMATION
  Report Type: 
  Country: None (occurrence: None)
  Receive Date: 20100909
  Receipt Date: 20100901
  Transmission Date: 20110219
  Serious: Yes (Death)
  Sender: FDA-Public Use
  Company Number: 018139

PATIENT
  Age: 3 Year

DRUGS (1)
  1. TUSSIONEX [Suspect]
     Indication: CROUP INFECTIOUS
     Dosage: (1/2 TSP AT BEDTIME ORAL)
     Route: 048
     Dates: start: 20090101, end: 20090101

REACTIONS (4)
  - CONTRAINDICATION TO MEDICAL TREATMENT [None]
  - DRUG ADMINISTRATION ERROR [None]
  - DRUG DISPENSING ERROR [None]
  - DRUG PRESCRIBING ERROR [None]
